FAERS Safety Report 25209683 (Version 2)
Quarter: 2025Q2

REPORT INFORMATION
  Report Type: Spontaneous
  Country: CN (occurrence: CN)
  Receive Date: 20250417
  Receipt Date: 20250422
  Transmission Date: 20250717
  Serious: Yes (Hospitalization, Other)
  Sender: ORGANON
  Company Number: CN-ORGANON-O2504CHN001181

PATIENT
  Age: 41 Year
  Sex: Male
  Weight: 62.9 kg

DRUGS (2)
  1. PROPECIA [Suspect]
     Active Substance: FINASTERIDE
     Indication: Alopecia
     Dosage: 1 TABLET, QD, ORALLY
     Route: 048
     Dates: start: 20250321
  2. MINOXIDIL [Concomitant]
     Active Substance: MINOXIDIL
     Indication: Alopecia
     Dosage: 0.5 MILLILITER, BID
     Route: 061
     Dates: start: 20250321

REACTIONS (5)
  - Blood creatine phosphokinase increased [Recovering/Resolving]
  - Eyelid oedema [Recovering/Resolving]
  - Oedema peripheral [Recovering/Resolving]
  - Urine output decreased [Recovered/Resolved]
  - Myalgia [Recovering/Resolving]

NARRATIVE: CASE EVENT DATE: 20250324
